FAERS Safety Report 9927305 (Version 3)
Quarter: 2014Q1

REPORT INFORMATION
  Report Type: Spontaneous
  Country: DE (occurrence: DE)
  Receive Date: 20140226
  Receipt Date: 20140312
  Transmission Date: 20141002
  Serious: Yes (Hospitalization, Disabling, Other)
  Sender: FDA-Public Use
  Company Number: PHHY2013DE154380

PATIENT
  Age: 85 Year
  Sex: Female
  Weight: 55 kg

DRUGS (4)
  1. ZOMETA [Suspect]
     Indication: BONE DISORDER
     Dosage: 4 MG/ 5 ML
     Route: 042
     Dates: start: 20131016
  2. ZOMETA [Suspect]
     Dosage: 4 MG/ 5 ML
     Route: 042
     Dates: end: 20131220
  3. BISOPROLOL [Concomitant]
     Dosage: 10 MG, UNK
  4. VOTUM//OLMESARTAN MEDOXOMIL [Concomitant]
     Dosage: 10 MG, UNK

REACTIONS (12)
  - Paraesthesia [Not Recovered/Not Resolved]
  - Asthenia [Recovering/Resolving]
  - Joint swelling [Recovered/Resolved]
  - Arthralgia [Recovered/Resolved]
  - Pyrexia [Recovered/Resolved]
  - Hypotension [Not Recovered/Not Resolved]
  - Heart rate increased [Not Recovered/Not Resolved]
  - Atrial fibrillation [Recovering/Resolving]
  - Extrasystoles [Not Recovered/Not Resolved]
  - Erythema [Recovered/Resolved]
  - Dyspnoea [Not Recovered/Not Resolved]
  - Fear [Unknown]
